FAERS Safety Report 9549732 (Version 1)
Quarter: 2013Q3

REPORT INFORMATION
  Report Type: Spontaneous
  Country: US (occurrence: US)
  Receive Date: 20130924
  Receipt Date: 20130924
  Transmission Date: 20140515
  Serious: No
  Sender: FDA-Public Use
  Company Number: US-ALLERGAN-1312168US

PATIENT
  Age: 76 Year
  Sex: Female

DRUGS (4)
  1. LUMIGAN 0.01% [Suspect]
     Indication: GLAUCOMA
     Dosage: 2 GTT, QHS
     Route: 047
  2. TIMOLOL MALEATE [Concomitant]
     Dosage: 1 GTT, QAM
     Route: 047
  3. NOVOLOG [Concomitant]
     Indication: DIABETES MELLITUS
  4. LANTUS [Concomitant]
     Indication: DIABETES MELLITUS

REACTIONS (2)
  - Eye pruritus [Recovered/Resolved]
  - Eye irritation [Unknown]
